FAERS Safety Report 18144426 (Version 3)
Quarter: 2020Q3

REPORT INFORMATION
  Report Type: Report from Study
  Country: US (occurrence: US)
  Receive Date: 20200813
  Receipt Date: 20200915
  Transmission Date: 20201103
  Serious: No
  Sender: FDA-Public Use
  Company Number: NVSC2020US221478

PATIENT
  Sex: Female

DRUGS (2)
  1. COSENTYX [Suspect]
     Active Substance: SECUKINUMAB
     Indication: PSORIASIS
     Dosage: 300 MG, QW ( BENEATH THE SKIN, USUALLY VIA INJECTION)
     Route: 058
     Dates: start: 20200724
  2. COSENTYX [Suspect]
     Active Substance: SECUKINUMAB
     Dosage: 300 MG, Q4W
     Route: 058

REACTIONS (5)
  - Dry skin [Unknown]
  - Pruritus [Recovering/Resolving]
  - Pain of skin [Recovering/Resolving]
  - Psoriasis [Unknown]
  - Skin exfoliation [Recovering/Resolving]
